FAERS Safety Report 7305833-X (Version None)
Quarter: 2011Q1

REPORT INFORMATION
  Report Type: 
  Country: None (occurrence: None)
  Receive Date: 20110222
  Receipt Date: 20110215
  Transmission Date: 20110831
  Serious: Yes (Other)
  Sender: FDA-Public Use
  Company Number: US-PFIZER INC-2011029927

PATIENT
  Sex: Female

DRUGS (2)
  1. ZYVOX [Suspect]
     Dosage: 600 MG, UNK
     Route: 042
  2. METHADON HCL TAB [Interacting]

REACTIONS (2)
  - RESPIRATORY DEPRESSION [None]
  - DRUG INTERACTION [None]
